FAERS Safety Report 10014612 (Version 3)
Quarter: 2014Q1

REPORT INFORMATION
  Report Type: Spontaneous
  Country: US (occurrence: US)
  Receive Date: 20140317
  Receipt Date: 20140324
  Transmission Date: 20141002
  Serious: Yes (Death)
  Sender: FDA-Public Use
  Company Number: US-009507513-1403USA005080

PATIENT
  Age: 57 Year
  Sex: Male

DRUGS (3)
  1. TEMODAR [Suspect]
     Indication: NEOPLASM MALIGNANT
     Dosage: 180 MG, ONE A NIGHT, ALONG WITH RADIATION
     Route: 048
     Dates: start: 201311, end: 201312
  2. TEMODAR [Suspect]
     Dosage: HIGHER DOSE, ONE WEEKLY ON FRIDAYS
     Route: 042
     Dates: start: 201401, end: 201401
  3. ANTINEOPLASTIC (UNSPECIFIED) [Concomitant]

REACTIONS (1)
  - Death [Fatal]
